FAERS Safety Report 16160059 (Version 1)
Quarter: 2019Q2

REPORT INFORMATION
  Report Type: Spontaneous
  Country: FR (occurrence: FR)
  Receive Date: 20190404
  Receipt Date: 20190404
  Transmission Date: 20190711
  Serious: Yes (Other)
  Sender: FDA-Public Use
  Company Number: FR-PFIZER INC-2019143567

PATIENT
  Age: 1 Year
  Sex: Male

DRUGS (4)
  1. SUFENTANIL [SUFENTANIL CITRATE] [Concomitant]
  2. SOLU-MEDROL [Suspect]
     Active Substance: METHYLPREDNISOLONE SODIUM SUCCINATE
     Indication: SURGERY
     Route: 042
     Dates: start: 20190312, end: 20190312
  3. DIPRIVAN [Concomitant]
     Active Substance: PROPOFOL
  4. SEVOFLURANE BAXTER [Concomitant]
     Active Substance: SEVOFLURANE

REACTIONS (3)
  - Bronchospasm [Recovered/Resolved]
  - Erythema [Recovered/Resolved]
  - Anaphylactic reaction [Recovered/Resolved]

NARRATIVE: CASE EVENT DATE: 20190312
